FAERS Safety Report 6414067-2 (Version None)
Quarter: 2009Q4

REPORT INFORMATION
  Report Type: 
  Country: None (occurrence: None)
  Receive Date: 20091022
  Receipt Date: 20091022
  Transmission Date: 20100525
  Serious: Yes (Other)
  Sender: FDA-Public Use
  Company Number: None

PATIENT
  Age: 1 Day
  Sex: Female
  Weight: 2.974 kg

DRUGS (2)
  1. GENTAK [Suspect]
     Indication: OPHTHALMIA NEONATORUM
     Dosage: ONE RIBBON BOTH EYES X1 OPHTHALMIC   ONCE
     Route: 047
     Dates: start: 20091018, end: 20091018
  2. GENTAK [Suspect]
     Indication: PROPHYLAXIS
     Dosage: ONE RIBBON BOTH EYES X1 OPHTHALMIC   ONCE
     Route: 047
     Dates: start: 20091018, end: 20091018

REACTIONS (2)
  - APPLICATION SITE DERMATITIS [None]
  - SKIN DISORDER [None]
